FAERS Safety Report 21535117 (Version 4)
Quarter: 2023Q1

REPORT INFORMATION
  Report Type: Report from Study
  Country: US (occurrence: US)
  Receive Date: 20221101
  Receipt Date: 20230317
  Transmission Date: 20230417
  Serious: No
  Sender: FDA-Public Use
  Company Number: US-ABBVIE-22K-163-4512406-00

PATIENT
  Sex: Male

DRUGS (9)
  1. HUMIRA [Suspect]
     Active Substance: ADALIMUMAB
     Indication: Ankylosing spondylitis
     Dosage: CITRATE FREE
     Route: 058
  2. HUMIRA [Suspect]
     Active Substance: ADALIMUMAB
     Dosage: CITRATE FREE
     Route: 058
  3. HUMIRA [Suspect]
     Active Substance: ADALIMUMAB
     Dosage: CITRATE FREE
     Route: 058
  4. HUMIRA [Suspect]
     Active Substance: ADALIMUMAB
     Route: 058
     Dates: start: 20210901
  5. HUMIRA [Suspect]
     Active Substance: ADALIMUMAB
     Route: 058
  6. PFIZER-BIONTECH COVID-19 VACCINE [Concomitant]
     Active Substance: TOZINAMERAN
     Indication: COVID-19 immunisation
     Dosage: FIRST DOSE?ONE IN ONCE
     Route: 030
     Dates: start: 20210324, end: 20210324
  7. PFIZER-BIONTECH COVID-19 VACCINE [Concomitant]
     Active Substance: TOZINAMERAN
     Indication: COVID-19 immunisation
     Dosage: SECOND DOSE?ONE IN ONCE
     Route: 030
     Dates: start: 20210414, end: 20210414
  8. PFIZER-BIONTECH COVID-19 VACCINE [Concomitant]
     Active Substance: TOZINAMERAN
     Indication: COVID-19 immunisation
     Dosage: THIRD DOSE-BOOSTER DOSE?ONE IN ONCE
     Route: 030
     Dates: start: 20211122, end: 20211122
  9. DULOXETINE [Concomitant]
     Active Substance: DULOXETINE
     Indication: Pain

REACTIONS (12)
  - Feeling abnormal [Unknown]
  - Somnolence [Unknown]
  - Laziness [Unknown]
  - Pain [Recovered/Resolved]
  - Unevaluable event [Unknown]
  - Visual impairment [Unknown]
  - Pain [Not Recovered/Not Resolved]
  - Nerve compression [Unknown]
  - Spondylitis [Unknown]
  - Nasal congestion [Unknown]
  - Dysstasia [Unknown]
  - Rhinitis allergic [Unknown]
